APPROVED DRUG PRODUCT: SOTRET
Active Ingredient: ISOTRETINOIN
Strength: 10MG
Dosage Form/Route: CAPSULE;ORAL
Application: A076041 | Product #001
Applicant: SUN PHARMACEUTICAL INDUSTRIES LTD
Approved: Dec 24, 2002 | RLD: No | RS: No | Type: DISCN